FAERS Safety Report 5518921-5 (Version None)
Quarter: 2007Q4

REPORT INFORMATION
  Report Type: 
  Country: None (occurrence: None)
  Receive Date: 20071116
  Receipt Date: 20071031
  Transmission Date: 20080405
  Serious: Yes (Hospitalization)
  Sender: FDA-Public Use
  Company Number: US-RB-008406-07

PATIENT
  Sex: Male

DRUGS (5)
  1. SUBOXONE [Suspect]
     Route: 060
     Dates: start: 20071022
  2. CHARCOAL [Concomitant]
     Indication: DRUG USE FOR UNKNOWN INDICATION
     Dosage: UNKNOWN AMOUNT GIVEN.
     Route: 048
     Dates: start: 20071025, end: 20071025
  3. JIMSON SEEDS [Suspect]
     Indication: DRUG USE FOR UNKNOWN INDICATION
     Dosage: PATIENT STATED HE ATE A POT FULL OF JIMSON SEEDS
     Route: 048
     Dates: start: 20071025, end: 20071025
  4. ATIVAN [Concomitant]
     Indication: AGITATION
     Route: 042
     Dates: start: 20071025, end: 20071025
  5. PHYSOSTIGMINE [Concomitant]
     Indication: DELIRIUM
     Route: 042
     Dates: start: 20071025, end: 20071025

REACTIONS (6)
  - AGITATION [None]
  - CONFUSIONAL STATE [None]
  - DELIRIUM [None]
  - HALLUCINATION [None]
  - ROAD TRAFFIC ACCIDENT [None]
  - TACHYCARDIA [None]
